FAERS Safety Report 25588111 (Version 1)
Quarter: 2025Q3

REPORT INFORMATION
  Report Type: Report from Study
  Country: US (occurrence: US)
  Receive Date: 20250722
  Receipt Date: 20250722
  Transmission Date: 20251020
  Serious: Yes (Hospitalization, Other)
  Sender: ELI LILLY AND COMPANY
  Company Number: US-ELI_LILLY_AND_COMPANY-US202506022177

PATIENT
  Age: 66 Year
  Sex: Female

DRUGS (1)
  1. TIRZEPATIDE [Suspect]
     Active Substance: TIRZEPATIDE
     Indication: Product used for unknown indication
     Route: 065

REACTIONS (5)
  - Hiatus hernia [Unknown]
  - Dehydration [Recovered/Resolved]
  - Oesophageal injury [Unknown]
  - Vomiting [Recovered/Resolved]
  - Retching [Recovered/Resolved]
